FAERS Safety Report 25714706 (Version 1)
Quarter: 2025Q3

REPORT INFORMATION
  Report Type: Spontaneous
  Country: GB (occurrence: GB)
  Receive Date: 20250822
  Receipt Date: 20250822
  Transmission Date: 20251021
  Serious: Yes (Other)
  Sender: GALPHARM INTERNATIONAL
  Company Number: None

PATIENT
  Age: 52 Year
  Sex: Female
  Weight: 68 kg

DRUGS (5)
  1. NAPROXEN [Suspect]
     Active Substance: NAPROXEN
     Indication: Product used for unknown indication
     Route: 065
     Dates: start: 20250801
  2. ACETAMINOPHEN\BENZALKONIUM\DICHLORALPHENAZONE\DIMETHICONE\HYDROCORTISO [Concomitant]
     Active Substance: ACETAMINOPHEN\BENZALKONIUM\DICHLORALPHENAZONE\DIMETHICONE\HYDROCORTISONE\ISOMETHEPTENE\NYSTATIN
     Indication: Product used for unknown indication
     Dosage: APPLY 3 TIMES/DAY UNTIL THE LESIONS HAVE HEALED
     Route: 061
     Dates: start: 20250715, end: 20250729
  3. HUXD3 [Concomitant]
     Indication: Product used for unknown indication
     Dosage: 2 DOSAGE FORM, WEEKLY
     Route: 065
     Dates: start: 20250721
  4. DESOGESTREL [Concomitant]
     Active Substance: DESOGESTREL
     Indication: Ill-defined disorder
     Dosage: AT THE SAME TIME EACH DAY (CHECK...
     Route: 065
     Dates: start: 20250320
  5. TRANEXAMIC ACID [Concomitant]
     Active Substance: TRANEXAMIC ACID
     Indication: Ill-defined disorder
     Route: 065
     Dates: start: 20250320

REACTIONS (1)
  - Abdominal distension [Recovered/Resolved]
